FAERS Safety Report 9718437 (Version 1)
Quarter: 2013Q4

REPORT INFORMATION
  Report Type: Not Available
  Country: US (occurrence: US)
  Receive Date: 20131125
  Receipt Date: 20131125
  Transmission Date: 20140711
  Serious: No
  Sender: FDA-Public Use
  Company Number: US-VIVUS-2013V1000574

PATIENT
  Age: 54 Year
  Sex: Female
  Weight: 108.96 kg

DRUGS (3)
  1. QSYMIA 3.75MG/23MG [Suspect]
     Indication: WEIGHT DECREASED
     Dosage: STARTED A WEEK AND A HALF AGO
     Route: 048
     Dates: start: 201307, end: 20130730
  2. ALDACTONE [Concomitant]
     Indication: HAIR DISORDER
     Dosage: STARTED 2 YEARS AGO
     Route: 048
     Dates: start: 2011
  3. METFORMIN [Concomitant]
     Indication: TYPE 2 DIABETES MELLITUS
     Dosage: STARTED 10 YEARS AGO
     Route: 048
     Dates: start: 2003

REACTIONS (5)
  - Abdominal distension [Not Recovered/Not Resolved]
  - Oedema peripheral [Not Recovered/Not Resolved]
  - Mood altered [Not Recovered/Not Resolved]
  - Feeling abnormal [Not Recovered/Not Resolved]
  - Dizziness [Not Recovered/Not Resolved]
